FAERS Safety Report 12179510 (Version 2)
Quarter: 2016Q2

REPORT INFORMATION
  Report Type: Spontaneous
  Country: US (occurrence: US)
  Receive Date: 20160315
  Receipt Date: 20160414
  Transmission Date: 20160815
  Serious: Yes (Other)
  Sender: FDA-Public Use
  Company Number: US-PFIZER INC-2016136477

PATIENT
  Age: 80 Year
  Sex: Female

DRUGS (3)
  1. METFORMIN [Suspect]
     Active Substance: METFORMIN HYDROCHLORIDE
     Indication: BLOOD GLUCOSE INCREASED
     Dosage: UNK
  2. VICTOZA [Suspect]
     Active Substance: LIRAGLUTIDE
     Indication: BLOOD GLUCOSE INCREASED
     Dosage: 1.2 MG, DAILY
     Dates: start: 20151020
  3. GLIPIZIDE. [Suspect]
     Active Substance: GLIPIZIDE
     Indication: BLOOD GLUCOSE INCREASED
     Dosage: UNK

REACTIONS (1)
  - Blood glucose increased [Unknown]
